FAERS Safety Report 19665475 (Version 1)
Quarter: 2021Q3

REPORT INFORMATION
  Report Type: Spontaneous
  Country: US (occurrence: US)
  Receive Date: 20210806
  Receipt Date: 20210806
  Transmission Date: 20211014
  Serious: No
  Sender: FDA-Public Use
  Company Number: US-ACCORD-220462

PATIENT
  Age: 59 Year
  Sex: Female
  Weight: 101.06 kg

DRUGS (3)
  1. DOCETAXEL ACCORD [Suspect]
     Active Substance: DOCETAXEL
     Indication: BREAST CANCER
     Dosage: IN 250CC NS
     Dates: start: 20200702, end: 20200909
  2. CYTOXAN [Suspect]
     Active Substance: CYCLOPHOSPHAMIDE
     Indication: BREAST CANCER
     Dosage: 500CC NS, Q21?4?CYCLES
     Route: 042
     Dates: start: 20200702, end: 20200909
  3. NEULASTA [Suspect]
     Active Substance: PEGFILGRASTIM
     Dates: start: 20200702, end: 20200909

REACTIONS (4)
  - Diarrhoea [Not Recovered/Not Resolved]
  - Dacryostenosis acquired [Unknown]
  - Nausea [Unknown]
  - Fatigue [Unknown]

NARRATIVE: CASE EVENT DATE: 20200702
